FAERS Safety Report 7228075-5 (Version None)
Quarter: 2011Q1

REPORT INFORMATION
  Report Type: 
  Country: None (occurrence: None)
  Receive Date: 20110114
  Receipt Date: 20100719
  Transmission Date: 20110831
  Serious: No
  Sender: FDA-Public Use
  Company Number: US-PFIZER INC-2010038648

PATIENT
  Sex: Male

DRUGS (2)
  1. MYCOBUTIN [Suspect]
     Indication: MYCOBACTERIAL INFECTION
     Dosage: 6.5 ML, 1X/DAY
     Route: 048
     Dates: start: 20100304
  2. BIAXIN [Concomitant]
     Indication: MYCOBACTERIAL INFECTION
     Dosage: 4 ML (125MG/5ML), EVERY 12 HOURS

REACTIONS (2)
  - DYSGEUSIA [None]
  - WRONG TECHNIQUE IN DRUG USAGE PROCESS [None]
